FAERS Safety Report 5679434-3 (Version None)
Quarter: 2008Q1

REPORT INFORMATION
  Report Type: 
  Country: None (occurrence: None)
  Receive Date: 20080325
  Receipt Date: 20080314
  Transmission Date: 20080703
  Serious: Yes (Other)
  Sender: FDA-Public Use
  Company Number: CA-ELI_LILLY_AND_COMPANY-CA200803004434

PATIENT
  Age: 73 Year
  Sex: Female

DRUGS (14)
  1. CYMBALTA [Suspect]
     Indication: NEURALGIA
     Dosage: 30 MG, DAILY (1/D)
     Dates: start: 20080227, end: 20080306
  2. AMOXICILLIN [Concomitant]
  3. LISINOPRIL [Concomitant]
  4. TORADOL [Concomitant]
  5. SENOKOT [Concomitant]
  6. PREMARIN [Concomitant]
  7. BUPROPION HCL [Concomitant]
  8. REMERON [Concomitant]
  9. MS CONTIN [Concomitant]
  10. NEXIUM [Concomitant]
  11. LORAZEPAM [Concomitant]
     Dosage: UNK, AS NEEDED
  12. CALCIUM [Concomitant]
  13. VITAMIN D [Concomitant]
  14. ESTRACE [Concomitant]

REACTIONS (4)
  - ALANINE AMINOTRANSFERASE INCREASED [None]
  - ASPARTATE AMINOTRANSFERASE INCREASED [None]
  - BLOOD ALKALINE PHOSPHATASE INCREASED [None]
  - GAMMA-GLUTAMYLTRANSFERASE INCREASED [None]
